FAERS Safety Report 4341277-0 (Version None)
Quarter: 2004Q1

REPORT INFORMATION
  Report Type: 
  Country: None (occurrence: None)
  Receive Date: 20040329
  Receipt Date: 20031203
  Transmission Date: 20041129
  Serious: No
  Sender: FDA-Public Use
  Company Number: 03P-163-0243677-00

PATIENT
  Age: 49 Year
  Sex: Female
  Weight: 51.7101 kg

DRUGS (1)
  1. HUMIRA [Suspect]
     Indication: RHEUMATOID ARTHRITIS
     Dosage: 40 MG,1 IN 1 WK, SUBCUTANEOUS
     Route: 058
     Dates: start: 20030701

REACTIONS (1)
  - NASOPHARYNGITIS [None]
